FAERS Safety Report 11867452 (Version 1)
Quarter: 2015Q4

REPORT INFORMATION
  Report Type: Spontaneous
  Country: US (occurrence: None)
  Receive Date: 20151223
  Receipt Date: 20151223
  Transmission Date: 20160305
  Serious: No
  Sender: FDA-Public Use
  Company Number: None

PATIENT
  Age: 3 Year
  Sex: Male

DRUGS (4)
  1. OXCARBAZEPIN [Concomitant]
     Active Substance: OXCARBAZEPINE
  2. AFINITOR [Suspect]
     Active Substance: EVEROLIMUS
     Indication: NEOPLASM MALIGNANT
     Route: 048
     Dates: start: 20140710
  3. DIAZEPAM. [Concomitant]
     Active Substance: DIAZEPAM
  4. PROAIR HFA [Concomitant]
     Active Substance: ALBUTEROL SULFATE

REACTIONS (2)
  - Gastroenteritis viral [None]
  - Drug dose omission [None]

NARRATIVE: CASE EVENT DATE: 20151208
